FAERS Safety Report 5228421-8 (Version None)
Quarter: 2007Q1

REPORT INFORMATION
  Report Type: 
  Country: None (occurrence: None)
  Receive Date: 20070131
  Receipt Date: 20070115
  Transmission Date: 20070707
  Serious: Yes (Life-Threatening, Hospitalization, Other)
  Sender: FDA-Public Use
  Company Number: 2006JP000611

PATIENT
  Age: 24 Year
  Sex: Female
  Weight: 40.4 kg

DRUGS (56)
  1. PROGRAF [Suspect]
     Indication: LUNG TRANSPLANT
     Dosage: SEE IMGAE
     Route: 048
     Dates: start: 20030623, end: 20030711
  2. PROGRAF [Suspect]
     Indication: LUNG TRANSPLANT
     Dosage: SEE IMGAE
     Route: 048
     Dates: start: 20030712, end: 20030909
  3. PROGRAF [Suspect]
     Indication: LUNG TRANSPLANT
     Dosage: SEE IMGAE
     Route: 048
     Dates: start: 20030910, end: 20031130
  4. PROGRAF [Suspect]
     Indication: LUNG TRANSPLANT
     Dosage: SEE IMGAE
     Route: 048
     Dates: start: 20031201, end: 20040524
  5. PROGRAF [Suspect]
     Indication: LUNG TRANSPLANT
     Dosage: SEE IMGAE
     Route: 048
     Dates: start: 20040525
  6. PROGRAF [Suspect]
     Indication: LUNG TRANSPLANT
     Dosage: 1 MG, CONTINUOUS, IV DRIP
     Route: 041
     Dates: start: 20030613, end: 20030619
  7. PROGRAF [Suspect]
     Indication: LUNG TRANSPLANT
     Dosage: 1 MG, CONTINUOUS, IV DRIP
     Route: 041
     Dates: start: 20030620, end: 20030623
  8. PROGRAF [Suspect]
     Indication: LUNG TRANSPLANT
     Dosage: SEE IMAGE
     Route: 048
  9. IMURAN [Suspect]
     Indication: LUNG TRANSPLANT
     Dosage: 100 MG, UNKNOWN/D, ORAL
     Route: 048
     Dates: start: 20030613, end: 20031005
  10. IMURAN [Suspect]
     Indication: LUNG TRANSPLANT
     Dosage: 100 MG, UNKNOWN/D, ORAL
     Route: 048
     Dates: start: 20031219, end: 20050829
  11. SOLU-MEDROL [Suspect]
  12. FENTANYL CITRATE [Suspect]
     Indication: LUNG TRANSPLANT
     Dosage: IV NOS
     Route: 042
     Dates: start: 20030613, end: 20030615
  13. FUNGIZONE [Suspect]
     Indication: LUNG TRANSPLANT
     Dosage: RESPIRATORY
     Route: 055
     Dates: start: 20030613, end: 20031116
  14. DIPRIVAN [Suspect]
     Indication: LUNG TRANSPLANT
     Dosage: IV NOS
     Route: 042
     Dates: start: 20030615, end: 20030630
  15. ANAPEINE (ROPIVACAINE) INJECTION [Suspect]
     Indication: LUNG TRANSPLANT
     Dosage: IV NOS
     Route: 042
     Dates: start: 20030616, end: 20030625
  16. METHYLPREDNISOLONE [Concomitant]
  17. PREDNISOLONE [Concomitant]
  18. CARBENIN (BETAMIPRON, PANIPENEM) INJECTION [Concomitant]
  19. TARGOCID [Concomitant]
  20. PACIL INJECTION [Concomitant]
  21. DIFLUCAN [Concomitant]
  22. ELASPOL (SIVELESTAT) INJECTION [Concomitant]
  23. DOPAMINE HYDROCHLORIDE [Concomitant]
  24. CORETEC INJECTION [Concomitant]
  25. TAGAMET (CIMETIDINE) INJECTION [Concomitant]
  26. NITROGLYCERIN ^NIHON KAYAKU^ (GLYCERYL TRINITRATE) INJECTION [Concomitant]
  27. DORMICUM/SWE/ (MIDAZOLAM) INJECTION [Concomitant]
  28. VECURONIUM BROMIDE [Concomitant]
  29. PROSTANDIN (ALPROSTADIL) INJECTION [Concomitant]
  30. BISOLVON (BROMHEXINE HDYROCHLORIDE) INHALATION [Concomitant]
  31. ALOTEC (ORCIPRENALINE SULFATE) INHALATION [Concomitant]
  32. FOY (GABEXATE MESILATE) INJECTION [Concomitant]
  33. HABEKACIN (ARBEKACIN)  INHALATION [Concomitant]
  34. DENOSINE ^TANABE^ (GANCICLOVIR) [Concomitant]
  35. MEROPEN (MEROPENEM) INJECTION [Concomitant]
  36. NEO-MINOPHAGEN C (GLYCYRRHIZIC ACIDM AMMONIUM SALT) INJECTION [Concomitant]
  37. TAZOCIN (PIPERACILLIN SODIUM, TAZOBACTAM SODIUM) INJECTION [Concomitant]
  38. SUCRALFATE [Concomitant]
  39. BAKTAR (SULFAMETHOXAZOLE, TRIMETHOPRIM) [Concomitant]
  40. SUPRECUR (BUSERELIN ACETATE) [Concomitant]
  41. KIDMIN (AMINO ACIDS NOS) [Concomitant]
  42. ZOLPIDEM TARTRATE [Concomitant]
  43. HIRNAMIN (LEVOMEPROMAZINE) [Concomitant]
  44. MAINTATE (BISOPROPOLOL FUMARATE) [Concomitant]
  45. LENDORM [Concomitant]
  46. EURODIUN (ESTAZOLAM) [Concomitant]
  47. MAGNESIUM OXIDE (MAGNESIUM OXIDE) [Concomitant]
  48. GASTER D ORODISPERSABLE CR TABLET [Suspect]
  49. HALCION [Concomitant]
  50. ZOVIRAX [Concomitant]
  51. BIOFERMIN R (STREPTOCOCCUS FAECALIS) [Concomitant]
  52. ITRACONAZOLE [Concomitant]
  53. CLARITHROMYCIN [Concomitant]
  54. ASPARA-CA (ASPARTATE CALCIUM) [Concomitant]
  55. NITRAZEPAM [Concomitant]
  56. SOLITAX-H (GLUCOSE, SODIUM CHLORIDE) [Concomitant]

REACTIONS (14)
  - CHYLOTHORAX [None]
  - CONVULSION [None]
  - CYTOMEGALOVIRUS VIRAEMIA [None]
  - DEPRESSED LEVEL OF CONSCIOUSNESS [None]
  - ENTEROCOLITIS [None]
  - HYPERGLYCAEMIA [None]
  - LYMPHATIC DUCT RUPTURE [None]
  - PLEURAL EFFUSION [None]
  - PNEUMONIA STAPHYLOCOCCAL [None]
  - PNEUMOTHORAX [None]
  - RENAL IMPAIRMENT [None]
  - SPUTUM CULTURE POSITIVE [None]
  - WHITE BLOOD CELL COUNT DECREASED [None]
  - WHITE BLOOD CELL COUNT INCREASED [None]
